FAERS Safety Report 7197447-X (Version None)
Quarter: 2010Q4

REPORT INFORMATION
  Report Type: 
  Country: None (occurrence: None)
  Receive Date: 20101208
  Receipt Date: 20101203
  Transmission Date: 20110411
  Serious: Yes (Death, Hospitalization)
  Sender: FDA-Public Use
  Company Number: 2010SP044924

PATIENT
  Age: 73 Year
  Sex: Female

DRUGS (5)
  1. TEMODAL [Suspect]
     Indication: GLIOBLASTOMA MULTIFORME
     Dosage: 135 MG;PO
     Route: 048
     Dates: start: 20100608, end: 20100721
  2. PANTOZOL /01263202/ [Concomitant]
  3. METOPROLOL [Concomitant]
  4. AMLODIPINE BESYLATE [Concomitant]
  5. DEXAMETHASONE [Concomitant]

REACTIONS (1)
  - ALVEOLITIS [None]
